FAERS Safety Report 5087615-5 (Version None)
Quarter: 2006Q3

REPORT INFORMATION
  Report Type: 
  Country: None (occurrence: None)
  Receive Date: 20060821
  Receipt Date: 20060808
  Transmission Date: 20061208
  Serious: Yes (Other)
  Sender: FDA-Public Use
  Company Number: 2006097170

PATIENT
  Age: 74 Year
  Sex: Female
  Weight: 59.8 kg

DRUGS (21)
  1. REVATIO [Suspect]
     Indication: PULMONARY HYPERTENSION
     Dosage: 60 MG (20 MG, 3 IN 1 D) ORAL
     Route: 048
     Dates: start: 20060701
  2. OXYGEN [Concomitant]
  3. TRACLEER [Concomitant]
  4. ILOPROST [Concomitant]
  5. FOSAMAX [Concomitant]
  6. VITAMIN D [Concomitant]
  7. FUROSEMIDE [Concomitant]
  8. K-DUR 10 [Concomitant]
  9. DIGOXIN [Concomitant]
  10. NEXIUM [Concomitant]
  11. MORPHINE SULFATE [Concomitant]
  12. ADVAIR DISKUS 100/50 [Concomitant]
  13. WELLBUTRIN XL [Concomitant]
  14. PRILOSEC [Concomitant]
  15. PROCHLORPERAZINE TAB [Concomitant]
  16. ZOLOFT [Concomitant]
  17. ALBUTEROL [Concomitant]
  18. ATROVENT [Concomitant]
  19. PREDNISONE TAB [Concomitant]
  20. CLONAZEPAM [Concomitant]
  21. DITROPAN [Concomitant]

REACTIONS (1)
  - HALLUCINATION, VISUAL [None]
